FAERS Safety Report 4806430-8 (Version None)
Quarter: 2005Q4

REPORT INFORMATION
  Report Type: 
  Country: None (occurrence: None)
  Receive Date: 20051019
  Receipt Date: 20051005
  Transmission Date: 20060501
  Serious: Yes (Death, Hospitalization, Other)
  Sender: FDA-Public Use
  Company Number: 2005-01791

PATIENT
  Age: 77 Year
  Sex: Male
  Weight: 72.1 kg

DRUGS (13)
  1. VELCADE [Suspect]
     Indication: MULTIPLE MYELOMA
     Dosage: 1.30MG/M2, INTRAVENOUS
     Route: 042
     Dates: start: 20050808, end: 20050808
  2. CRESTOR [Concomitant]
  3. LOTENSIN [Concomitant]
  4. INSULIN [Concomitant]
  5. IRON [Concomitant]
  6. DURAGESIC-100 [Concomitant]
  7. PROTONIX [Concomitant]
  8. MOBIC [Concomitant]
  9. VITAMIN C (ASCORBIC ACID) [Concomitant]
  10. LASIX [Concomitant]
  11. ZYRTEC [Concomitant]
  12. STOOL SOFTENENR (DOCUSATE SODIUM) [Concomitant]
  13. ARANESP [Concomitant]

REACTIONS (15)
  - BLOOD CALCIUM DECREASED [None]
  - CARDIAC FAILURE CONGESTIVE [None]
  - DIALYSIS [None]
  - DISEASE PROGRESSION [None]
  - DISEASE RECURRENCE [None]
  - LIMB INJURY [None]
  - MOOD ALTERED [None]
  - MULTIPLE MYELOMA [None]
  - NEPHRITIS [None]
  - PLEURAL EFFUSION [None]
  - PNEUMONIA [None]
  - RENAL FAILURE ACUTE [None]
  - RENAL FAILURE CHRONIC [None]
  - URAEMIC ENCEPHALOPATHY [None]
  - URINE OUTPUT DECREASED [None]
